FAERS Safety Report 16995012 (Version 1)
Quarter: 2019Q4

REPORT INFORMATION
  Report Type: Spontaneous
  Country: FR (occurrence: FR)
  Receive Date: 20191105
  Receipt Date: 20191105
  Transmission Date: 20200122
  Serious: Yes (Hospitalization, Other)
  Sender: FDA-Public Use
  Company Number: FR-PFIZER INC-2019477412

PATIENT
  Age: 89 Year
  Sex: Female
  Weight: 50 kg

DRUGS (1)
  1. CORDARONE [Suspect]
     Active Substance: AMIODARONE HYDROCHLORIDE
     Indication: ATRIAL FIBRILLATION
     Dosage: 200 MG, DAILY
     Route: 048
     Dates: start: 201905, end: 20191002

REACTIONS (5)
  - Weight decreased [Not Recovered/Not Resolved]
  - Cardiac failure [Recovering/Resolving]
  - Temperature intolerance [Not Recovered/Not Resolved]
  - Hypoglycaemia [Recovered/Resolved]
  - Protein bound iodine increased [Not Recovered/Not Resolved]

NARRATIVE: CASE EVENT DATE: 201907
